FAERS Safety Report 23599130 (Version 1)
Quarter: 2024Q1

REPORT INFORMATION
  Report Type: Spontaneous
  Country: US (occurrence: US)
  Receive Date: 20240306
  Receipt Date: 20240306
  Transmission Date: 20240410
  Serious: No
  Sender: FDA-Public Use
  Company Number: US-HORIZON THERAPEUTICS-HZN-2023-005193

PATIENT

DRUGS (1)
  1. RAVICTI [Suspect]
     Active Substance: GLYCEROL PHENYLBUTYRATE
     Indication: Product used for unknown indication
     Dosage: UNK DOSE, LESS THAN 4.5 ML/M2 /DAY
     Route: 065

REACTIONS (2)
  - Therapeutic response unexpected [Unknown]
  - Coagulopathy [Recovering/Resolving]
